FAERS Safety Report 9235036 (Version 2)
Quarter: 2013Q2

REPORT INFORMATION
  Report Type: Report from Study
  Country: US (occurrence: US)
  Receive Date: 20130416
  Receipt Date: 20130418
  Transmission Date: 20140414
  Serious: Yes (Death)
  Sender: FDA-Public Use
  Company Number: US-ACTELION-A-US2013-81934

PATIENT
  Age: 72 Year
  Sex: Female

DRUGS (3)
  1. VENTAVIS [Suspect]
     Indication: PULMONARY ARTERIAL HYPERTENSION
     Dosage: UNK
     Route: 055
  2. LETAIRIS [Concomitant]
  3. SILDENAFIL [Concomitant]
     Dosage: UNK

REACTIONS (2)
  - Renal failure [Fatal]
  - Cardiac failure congestive [Fatal]
